FAERS Safety Report 6846005-2 (Version None)
Quarter: 2010Q3

REPORT INFORMATION
  Report Type: 
  Country: None (occurrence: None)
  Receive Date: 20100712
  Receipt Date: 20100622
  Transmission Date: 20110219
  Serious: Yes (Hospitalization)
  Sender: FDA-Public Use
  Company Number: 2280705-2010-00009

PATIENT
  Sex: Female

DRUGS (2)
  1. ORAJEL MAXIMUM STRENGTH ORAL PAIN RELIEVER [Suspect]
     Indication: STOMATITIS
     Dosage: APPLIED TO SORE IN MOUTH EVERY 5-6 HOURS
     Dates: start: 20100601
  2. ORAJEL MAXIMUM STRENGTH ORAL PAIN RELIEVER [Suspect]
     Indication: TOOTH EXTRACTION
     Dosage: APPLIED TO SORE IN MOUTH EVERY 5-6 HOURS
     Dates: start: 20100601

REACTIONS (3)
  - OXYGEN SATURATION DECREASED [None]
  - PALPITATIONS [None]
  - RESPIRATORY DISORDER [None]
